FAERS Safety Report 25445805 (Version 1)
Quarter: 2025Q2

REPORT INFORMATION
  Report Type: Spontaneous
  Country: US (occurrence: None)
  Receive Date: 20250617
  Receipt Date: 20250617
  Transmission Date: 20250716
  Serious: Yes (Other)
  Sender: FDA-CTU
  Company Number: None

PATIENT
  Age: 72 Year
  Sex: Female
  Weight: 60.75 kg

DRUGS (12)
  1. METOCLOPRAMIDE [Suspect]
     Active Substance: METOCLOPRAMIDE
     Indication: Nausea
     Route: 048
     Dates: start: 20250529, end: 20250529
  2. L-Thyroxine 50 mcg every other day [Concomitant]
  3. every other day L-Thyroxine 75 mcg [Concomitant]
  4. Atenolol ? 25 mg every day [Concomitant]
  5. Vitamin D3 ? 2000 iu every day [Concomitant]
  6. CoQ10 100 mg every other day [Concomitant]
  7. Famotidine (acid reducer) 20 mg as needed [Concomitant]
  8. Loratadine (allergy relief) 10 mg as needed [Concomitant]
  9. Dr. Gundry Bio Complete 3 [Concomitant]
  10. prebiotics [Concomitant]
  11. PROBIOTICS NOS [Concomitant]
     Active Substance: PROBIOTICS NOS
  12. postbiotics [Concomitant]

REACTIONS (5)
  - Dizziness [None]
  - Gait disturbance [None]
  - Fall [None]
  - Loss of consciousness [None]
  - Pain [None]

NARRATIVE: CASE EVENT DATE: 20250529
